FAERS Safety Report 21501118 (Version 1)
Quarter: 2022Q4

REPORT INFORMATION
  Report Type: Report from Study
  Country: TW (occurrence: TW)
  Receive Date: 20221025
  Receipt Date: 20221025
  Transmission Date: 20230113
  Serious: Yes (Other)
  Sender: FDA-Public Use
  Company Number: TW-JNJFOC-20221039604

PATIENT

DRUGS (1)
  1. IMBRUVICA [Suspect]
     Active Substance: IBRUTINIB
     Indication: Chronic lymphocytic leukaemia
     Route: 048

REACTIONS (5)
  - Tumour lysis syndrome [Unknown]
  - Cardiovascular disorder [Unknown]
  - Infection susceptibility increased [Unknown]
  - Atrial fibrillation [Unknown]
  - Decreased immune responsiveness [Unknown]
